FAERS Safety Report 4395294-5 (Version None)
Quarter: 2004Q3

REPORT INFORMATION
  Report Type: 
  Country: None (occurrence: None)
  Receive Date: 20040707
  Receipt Date: 20040625
  Transmission Date: 20050211
  Serious: Yes (Death)
  Sender: FDA-Public Use
  Company Number: 207108

PATIENT
  Age: 67 Year
  Sex: Male

DRUGS (5)
  1. ACTILYSE (ALTEPLASE, ALTEPLASE) PWDR + SOLVENT, INFUSION SOLN [Suspect]
     Indication: CEREBRAL INFARCTION
     Dosage: SEE IMAGE
     Route: 042
     Dates: start: 20040517, end: 20040517
  2. ACTILYSE (ALTEPLASE, ALTEPLASE) PWDR + SOLVENT, INFUSION SOLN [Suspect]
     Indication: CEREBRAL INFARCTION
     Dosage: SEE IMAGE
     Route: 042
     Dates: start: 20040517, end: 20040517
  3. PRIMPERAN ELIXIR [Concomitant]
  4. HYDROCHLOROTHIAZIDE [Concomitant]
  5. ENALAPRIL MALEATE [Concomitant]

REACTIONS (2)
  - BRAIN OEDEMA [None]
  - COMA [None]
